FAERS Safety Report 8309104-4 (Version None)
Quarter: 2012Q2

REPORT INFORMATION
  Report Type: 
  Country: None (occurrence: None)
  Receive Date: 20120424
  Receipt Date: 20120419
  Transmission Date: 20120825
  Serious: Yes (Other)
  Sender: FDA-Public Use
  Company Number: US-PFIZER INC-2012097963

PATIENT
  Sex: Female
  Weight: 42.6 kg

DRUGS (6)
  1. LYRICA [Suspect]
     Indication: TRIGEMINAL NEURALGIA
     Dosage: 50 MG, 2X/DAY
     Route: 048
     Dates: start: 20060201
  2. LYRICA [Suspect]
     Dosage: 150 MG, 2X/DAY
     Route: 048
  3. LYRICA [Suspect]
     Dosage: 150 MG, UNK
     Route: 048
     Dates: start: 20060101
  4. HYDROCODONE [Suspect]
     Indication: NERVOUS SYSTEM DISORDER
  5. HYDROCODONE [Suspect]
     Indication: HEADACHE
     Dosage: 750 MG, UNK
     Dates: start: 20060201
  6. XANAX [Concomitant]
     Indication: SLEEP DISORDER
     Dosage: 1 MG, 2X/DAY
     Route: 048

REACTIONS (3)
  - NERVOUS SYSTEM DISORDER [None]
  - HEADACHE [None]
  - NAUSEA [None]
